FAERS Safety Report 22692047 (Version 3)
Quarter: 2023Q4

REPORT INFORMATION
  Report Type: Spontaneous
  Country: US (occurrence: US)
  Receive Date: 20230711
  Receipt Date: 20231208
  Transmission Date: 20240110
  Serious: No
  Sender: FDA-Public Use
  Company Number: US-PFIZER INC-PV202200120315

PATIENT
  Age: 52 Year
  Sex: Male

DRUGS (1)
  1. BOSULIF [Suspect]
     Active Substance: BOSUTINIB MONOHYDRATE
     Dosage: 300 MG, DAILY (BY MOUTH DAILY WITH FOOD. QTY: 90 (NINETY) TABLET)
     Route: 048

REACTIONS (2)
  - Malaise [Recovered/Resolved]
  - Laboratory test abnormal [Recovered/Resolved]
